FAERS Safety Report 23145784 (Version 2)
Quarter: 2023Q4

REPORT INFORMATION
  Report Type: Spontaneous
  Country: MX (occurrence: MX)
  Receive Date: 20231103
  Receipt Date: 20231106
  Transmission Date: 20240110
  Serious: No
  Sender: FDA-Public Use
  Company Number: MX-SCALL-2023-AMR-094492

PATIENT
  Age: 76 Year
  Sex: Female

DRUGS (2)
  1. DUTASTERIDE [Suspect]
     Active Substance: DUTASTERIDE
     Indication: Alopecia
     Dosage: 0.5 MG, QD
     Route: 065
     Dates: start: 202307
  2. ENTRESTO [Concomitant]
     Active Substance: SACUBITRIL\VALSARTAN
     Indication: Blood pressure measurement
     Route: 065

REACTIONS (3)
  - Skin reaction [Not Recovered/Not Resolved]
  - Dry skin [Not Recovered/Not Resolved]
  - Macule [Recovered/Resolved]

NARRATIVE: CASE EVENT DATE: 20230701
